FAERS Safety Report 5916284-4 (Version None)
Quarter: 2008Q4

REPORT INFORMATION
  Report Type: 
  Country: None (occurrence: None)
  Receive Date: 20081013
  Receipt Date: 20081004
  Transmission Date: 20090506
  Serious: Yes (Hospitalization, Other)
  Sender: FDA-Public Use
  Company Number: PHHY2008BR10084

PATIENT
  Age: 51 Year
  Sex: Female
  Weight: 64 kg

DRUGS (2)
  1. ESTRADERM [Suspect]
     Indication: HORMONE REPLACEMENT THERAPY
     Dosage: 1 PATCH EVERY 3 OR 4 DAYS
     Route: 062
     Dates: start: 20070301, end: 20080602
  2. MIOSAN [Concomitant]
     Indication: PAIN
     Dosage: 5 MG

REACTIONS (11)
  - BONE PAIN [None]
  - BURSITIS [None]
  - DRUG EFFECT DECREASED [None]
  - DRUG INEFFECTIVE [None]
  - FIBROMYALGIA [None]
  - HOT FLUSH [None]
  - HYPERHIDROSIS [None]
  - IRRITABILITY [None]
  - SKIN IRRITATION [None]
  - TENDONITIS [None]
  - WHEELCHAIR USER [None]
